FAERS Safety Report 18322361 (Version 1)
Quarter: 2020Q3

REPORT INFORMATION
  Report Type: Report from Study
  Country: CA (occurrence: CA)
  Receive Date: 20200928
  Receipt Date: 20200928
  Transmission Date: 20201103
  Serious: Yes (Other)
  Sender: FDA-Public Use
  Company Number: CA-JNJFOC-20200837136

PATIENT
  Age: 29 Year
  Sex: Female
  Weight: 93 kg

DRUGS (1)
  1. REMICADE [Suspect]
     Active Substance: INFLIXIMAB
     Indication: COLITIS ULCERATIVE
     Dosage: PATIENT RECEIVED THE DOSE ON 24?AUG?2020. INFUSED LAST VISIT (07/07/2020)
     Route: 042
     Dates: start: 20151014

REACTIONS (2)
  - Hodgkin^s disease [Unknown]
  - Lymph gland infection [Unknown]

NARRATIVE: CASE EVENT DATE: 202005
